FAERS Safety Report 10448342 (Version 2)
Quarter: 2014Q3

REPORT INFORMATION
  Report Type: Spontaneous
  Country: CA (occurrence: CA)
  Receive Date: 20140911
  Receipt Date: 20140923
  Transmission Date: 20150326
  Serious: Yes (Other)
  Sender: FDA-Public Use
  Company Number: ALCN2014CA005016

PATIENT
  Age: 69 Year
  Sex: Male

DRUGS (1)
  1. FLUORESCITE [Suspect]
     Active Substance: D+C YELLOW NO. 8
     Dosage: 1 UNK, UNK
     Route: 065

REACTIONS (3)
  - Lip swelling [Recovered/Resolved]
  - Pharyngeal oedema [Recovered/Resolved]
  - Pruritus [Recovered/Resolved]
